FAERS Safety Report 4501666-8 (Version None)
Quarter: 2004Q4

REPORT INFORMATION
  Report Type: 
  Country: None (occurrence: None)
  Receive Date: 20041109
  Receipt Date: 20041026
  Transmission Date: 20050328
  Serious: Yes (Death, Life-Threatening, Hospitalization, Disabling)
  Sender: FDA-Public Use
  Company Number: 2004AP04236

PATIENT
  Age: 53 Year
  Sex: Male
  Weight: 70 kg

DRUGS (21)
  1. IRESSA [Suspect]
     Indication: CARCINOMA
     Dosage: 500 MG DAILY PO
     Route: 048
     Dates: start: 20040713, end: 20040810
  2. IRESSA [Suspect]
     Indication: HYPOPHARYNGEAL CANCER
     Dosage: 500 MG DAILY PO
     Route: 048
     Dates: start: 20040713, end: 20040810
  3. IRESSA [Suspect]
     Indication: SQUAMOUS CELL CARCINOMA
     Dosage: 500 MG DAILY PO
     Route: 048
     Dates: start: 20040713, end: 20040810
  4. SEROXAT [Concomitant]
  5. LORMETAZEPAM [Concomitant]
  6. SULFARLEM [Concomitant]
  7. EFFORTYL [Concomitant]
  8. RADIATION THERAPY [Concomitant]
  9. CISPLATIN [Concomitant]
  10. DOCETAXEL [Concomitant]
  11. GEMCITABINE [Concomitant]
  12. TRANSTEC [Concomitant]
  13. MORPHINE [Concomitant]
  14. FELDENE [Concomitant]
  15. MEDROL [Concomitant]
  16. SOLU-MEDROL [Concomitant]
  17. DAFALGAN [Concomitant]
  18. PARIET [Concomitant]
  19. IFOSFAMIDE [Concomitant]
  20. ZOMETA [Concomitant]
  21. BUPRENORPHINE HCL [Concomitant]

REACTIONS (15)
  - ABDOMINAL SYMPTOM [None]
  - ACUTE RESPIRATORY DISTRESS SYNDROME [None]
  - ADRENAL INSUFFICIENCY [None]
  - ANURIA [None]
  - BACTERIAL INFECTION [None]
  - BLOOD CALCIUM DECREASED [None]
  - C-REACTIVE PROTEIN INCREASED [None]
  - CARDIOMEGALY [None]
  - DISSEMINATED INTRAVASCULAR COAGULATION [None]
  - HYPOGLYCAEMIA [None]
  - LOSS OF CONSCIOUSNESS [None]
  - LUNG DISORDER [None]
  - MULTI-ORGAN FAILURE [None]
  - PURPURA [None]
  - SEPTIC SHOCK [None]
